FAERS Safety Report 7000512-0 (Version None)
Quarter: 2010Q3

REPORT INFORMATION
  Report Type: 
  Country: None (occurrence: None)
  Receive Date: 20100920
  Receipt Date: 20100701
  Transmission Date: 20110219
  Serious: No
  Sender: FDA-Public Use
  Company Number: US-ASTRAZENECA-2007UW05686

PATIENT
  Age: 45 Year
  Sex: Female
  Weight: 85.3 kg

DRUGS (15)
  1. SEROQUEL [Suspect]
     Indication: HALLUCINATION, AUDITORY
     Dosage: 25-100 MG
     Route: 048
     Dates: start: 19960319
  2. SEROQUEL [Suspect]
     Dosage: 200-700 MG
     Route: 048
     Dates: start: 19980101, end: 20061101
  3. SEROQUEL [Suspect]
     Dosage: 100-700MG
     Route: 048
     Dates: start: 20010101, end: 20061201
  4. NEXIUM [Concomitant]
     Route: 065
  5. KLONOPIN [Concomitant]
     Route: 065
  6. PROZAC [Concomitant]
     Route: 065
  7. GEODON [Concomitant]
     Route: 048
  8. NORVASC [Concomitant]
     Route: 065
  9. BENADRYL [Concomitant]
     Route: 065
  10. RISPERDAL [Concomitant]
     Indication: DEPRESSION
     Route: 048
     Dates: start: 19960101, end: 20010101
  11. ANAFRANIL [Concomitant]
     Route: 065
  12. EFFEXOR XR [Concomitant]
     Route: 065
  13. LOTENSIN [Concomitant]
     Route: 065
  14. NAVANE [Concomitant]
     Route: 048
  15. DIPHENHYDRAMINE HCL [Concomitant]

REACTIONS (4)
  - DIABETES MELLITUS [None]
  - HYPERTENSION [None]
  - OVERWEIGHT [None]
  - TYPE 2 DIABETES MELLITUS [None]
